FAERS Safety Report 4689331-8 (Version None)
Quarter: 2005Q2

REPORT INFORMATION
  Report Type: 
  Country: None (occurrence: None)
  Receive Date: 20050608
  Receipt Date: 20050216
  Transmission Date: 20051028
  Serious: No
  Sender: FDA-Public Use
  Company Number: 2005-BP-02698BP

PATIENT
  Age: 38 Year
  Sex: Male
  Weight: 100 kg

DRUGS (1)
  1. SPIRIVA [Suspect]
     Indication: CHRONIC OBSTRUCTIVE PULMONARY DISEASE
     Dosage: 18 MCG (15 MCG, OD) IH
     Route: 055

REACTIONS (2)
  - DRUG INEFFECTIVE [None]
  - DYSPNOEA EXACERBATED [None]
